FAERS Safety Report 8537332-1 (Version None)
Quarter: 2012Q3

REPORT INFORMATION
  Report Type: 
  Country: None (occurrence: None)
  Receive Date: 20120725
  Receipt Date: 20120717
  Transmission Date: 20120928
  Serious: Yes (Hospitalization, Disabling, Other)
  Sender: FDA-Public Use
  Company Number: US-MSD-1106USA03370

PATIENT

DRUGS (9)
  1. FOSAMAX [Suspect]
     Dosage: 70 MG, QW
     Route: 048
     Dates: start: 20090217, end: 20100910
  2. FOSAMAX [Suspect]
     Indication: OSTEOPOROSIS
     Dosage: 10 MG, UNK
     Route: 048
     Dates: start: 19951207, end: 19980501
  3. FOSAMAX [Suspect]
     Indication: OSTEOPENIA
     Dosage: 5 MG, UNK
     Route: 048
     Dates: start: 19980601, end: 20021001
  4. FOSAMAX [Suspect]
     Dosage: 70 MG, QW
     Route: 048
     Dates: start: 20021101, end: 20070601
  5. MK-9278 [Concomitant]
     Route: 048
     Dates: start: 19700101
  6. CALCIUM (UNSPECIFIED) [Concomitant]
     Dosage: 1200-2000 MG DAILY
     Route: 048
     Dates: start: 19800101
  7. FOSAMAX [Suspect]
  8. FOSAMAX PLUS D [Suspect]
     Indication: OSTEOPOROSIS
     Dosage: 70/2800
     Route: 048
     Dates: start: 20070601, end: 20090201
  9. FOSAMAX PLUS D [Suspect]
     Indication: OSTEOPENIA

REACTIONS (46)
  - FEMUR FRACTURE [None]
  - STRESS FRACTURE [None]
  - GASTROOESOPHAGEAL REFLUX DISEASE [None]
  - BLOOD TRIGLYCERIDES INCREASED [None]
  - CONSTIPATION [None]
  - ABSCESS LIMB [None]
  - TOOTH DISORDER [None]
  - HYPERLIPIDAEMIA [None]
  - HIP FRACTURE [None]
  - INTERVERTEBRAL DISC DEGENERATION [None]
  - SPINAL COLUMN STENOSIS [None]
  - ARTHRALGIA [None]
  - LOW TURNOVER OSTEOPATHY [None]
  - SINUSITIS [None]
  - BURSITIS [None]
  - VITAMIN D DEFICIENCY [None]
  - RESPIRATORY TRACT INFECTION [None]
  - ANOGENITAL WARTS [None]
  - CONTUSION [None]
  - NAIL AVULSION [None]
  - OSTEOPOROSIS [None]
  - SQUAMOUS CELL CARCINOMA OF SKIN [None]
  - DRUG HYPERSENSITIVITY [None]
  - HYPOCALCAEMIA [None]
  - DRY MOUTH [None]
  - MUSCLE STRAIN [None]
  - DENTAL CARIES [None]
  - FOOT FRACTURE [None]
  - INTERVERTEBRAL DISC PROTRUSION [None]
  - RHINITIS ALLERGIC [None]
  - PAIN IN EXTREMITY [None]
  - CARPAL TUNNEL SYNDROME [None]
  - BLOOD PRESSURE INCREASED [None]
  - BACK PAIN [None]
  - SACROILIITIS [None]
  - FALL [None]
  - JOINT INJURY [None]
  - NODAL OSTEOARTHRITIS [None]
  - CALCIUM DEFICIENCY [None]
  - CELLULITIS [None]
  - INSOMNIA [None]
  - LUMBAR SPINAL STENOSIS [None]
  - INTERVERTEBRAL DISC DISORDER [None]
  - MUSCULAR WEAKNESS [None]
  - SPINAL OSTEOARTHRITIS [None]
  - WOUND [None]
